FAERS Safety Report 13824539 (Version 2)
Quarter: 2017Q3

REPORT INFORMATION
  Report Type: Spontaneous
  Country: US (occurrence: US)
  Receive Date: 20170802
  Receipt Date: 20170815
  Transmission Date: 20171127
  Serious: No
  Sender: FDA-Public Use
  Company Number: US-GLAXOSMITHKLINE-US2017117584

PATIENT
  Age: 53 Year
  Sex: Female

DRUGS (2)
  1. FLONASE [Suspect]
     Active Substance: FLUTICASONE PROPIONATE
     Indication: MULTIPLE ALLERGIES
     Dosage: UNK
  2. FLONASE [Suspect]
     Active Substance: FLUTICASONE PROPIONATE
     Indication: NASAL CONGESTION

REACTIONS (9)
  - Pharyngeal ulceration [Not Recovered/Not Resolved]
  - Inappropriate schedule of drug administration [Unknown]
  - Epistaxis [Unknown]
  - Stomatitis [Unknown]
  - Oral candidiasis [Unknown]
  - Pharyngeal disorder [Unknown]
  - Dry throat [Unknown]
  - Off label use [Unknown]
  - Candida infection [Unknown]
